FAERS Safety Report 6230175-3 (Version None)
Quarter: 2009Q2

REPORT INFORMATION
  Report Type: 
  Country: None (occurrence: None)
  Receive Date: 20090615
  Receipt Date: 20090604
  Transmission Date: 20091009
  Serious: Yes (Other)
  Sender: FDA-Public Use
  Company Number: US-JNJFOC-20090602235

PATIENT
  Sex: Male
  Weight: 97.07 kg

DRUGS (13)
  1. DOXIL [Suspect]
     Indication: KAPOSI'S SARCOMA
     Route: 042
  2. DECADRON [Suspect]
     Indication: KAPOSI'S SARCOMA
     Route: 065
  3. BIO ANTIOXIDANT [Concomitant]
     Indication: VITAMIN SUPPLEMENTATION
     Route: 065
  4. TRUVADA [Concomitant]
     Route: 065
  5. MEPRON [Concomitant]
     Route: 065
  6. PREVACID [Concomitant]
     Route: 065
  7. PROCHLORPERAZINE [Concomitant]
     Indication: NAUSEA
     Route: 065
  8. NORVIR [Concomitant]
     Route: 065
  9. TESTOSTERONE CYPIONATE [Concomitant]
     Dosage: 200MG
     Route: 065
  10. ZOLPIDEM TARTRATE [Concomitant]
     Route: 065
  11. ALLEGRA [Concomitant]
     Indication: SEASONAL ALLERGY
     Route: 065
  12. PREZISTA [Concomitant]
     Route: 065
  13. SODIUM SULFACETAMIDE [Concomitant]
     Route: 061

REACTIONS (7)
  - BLISTER [None]
  - BLOOD GLUCOSE INCREASED [None]
  - DYSPEPSIA [None]
  - FATIGUE [None]
  - MILIA [None]
  - PAIN [None]
  - WEIGHT INCREASED [None]
